FAERS Safety Report 15611767 (Version 1)
Quarter: 2018Q4

REPORT INFORMATION
  Report Type: Spontaneous
  Country: US (occurrence: US)
  Receive Date: 20181113
  Receipt Date: 20181113
  Transmission Date: 20190205
  Serious: No
  Sender: FDA-Public Use
  Company Number: US-BAUSCH-BL-2018-029722

PATIENT
  Age: 50 Year
  Sex: Male
  Weight: 95.34 kg

DRUGS (1)
  1. LUMIFY [Suspect]
     Active Substance: BRIMONIDINE TARTRATE
     Indication: OCULAR HYPERAEMIA
     Dosage: 1 DROP INTO EACH EYE, PATIENT USED THE PRODUCT FOR ABOUT 1, 1 AND 1/2 WEEKS
     Route: 047
     Dates: start: 201810, end: 201810

REACTIONS (1)
  - Drug ineffective [Recovered/Resolved]

NARRATIVE: CASE EVENT DATE: 201810
